FAERS Safety Report 11821397 (Version 3)
Quarter: 2016Q2

REPORT INFORMATION
  Report Type: Spontaneous
  Country: US (occurrence: US)
  Receive Date: 20151210
  Receipt Date: 20160415
  Transmission Date: 20160815
  Serious: Yes (Other)
  Sender: FDA-Public Use
  Company Number: US-PFIZER INC-2015419625

PATIENT
  Age: 57 Year
  Sex: Male

DRUGS (18)
  1. AMLODIPINE BESYLATE/ATORVASTATIN CALCIUM [Concomitant]
     Active Substance: AMLODIPINE BESYLATE\ATORVASTATIN CALCIUM
     Dosage: UNK
  2. ANDROGEL [Concomitant]
     Active Substance: TESTOSTERONE
     Dosage: UNK
  3. CARVEDILOL. [Concomitant]
     Active Substance: CARVEDILOL
     Dosage: UNK
  4. FOLIC ACID. [Concomitant]
     Active Substance: FOLIC ACID
     Dosage: UNK
  5. TESTIM [Concomitant]
     Active Substance: TESTOSTERONE
     Dosage: UNK
     Dates: start: 20140728, end: 20151021
  6. VALIUM [Concomitant]
     Active Substance: DIAZEPAM
     Dosage: UNK
  7. LAZANDA [Concomitant]
     Active Substance: FENTANYL CITRATE
     Dosage: UNK
  8. AMITRIPTYLINE HCL [Concomitant]
     Active Substance: AMITRIPTYLINE
     Dosage: UNK
     Dates: start: 20140728, end: 20151021
  9. FENTORA [Concomitant]
     Active Substance: FENTANYL CITRATE
     Dosage: UNK
  10. SERTRALINE HCL [Concomitant]
     Active Substance: SERTRALINE HYDROCHLORIDE
     Dosage: UNK
  11. OXYCODONE AND ACETAMINOPHEN [Concomitant]
     Active Substance: ACETAMINOPHEN\OXYCODONE HYDROCHLORIDE
     Dosage: UNK
  12. INLYTA [Suspect]
     Active Substance: AXITINIB
     Indication: RENAL CANCER
     Dosage: 3 MG (3 TABLETS OF 1 MG), 2X/DAY (AVOID GRAPEFRUIT PRODUCTS)
     Route: 048
  13. TRAZODONE HYDROCHLORIDE. [Concomitant]
     Active Substance: TRAZODONE HYDROCHLORIDE
     Dosage: UNK
  14. ONDANSETRON HCL [Concomitant]
     Active Substance: ONDANSETRON HYDROCHLORIDE
     Dosage: UNK
  15. GLIPIZIDE. [Concomitant]
     Active Substance: GLIPIZIDE
     Dosage: UNK
  16. VITAMIN D3 [Concomitant]
     Active Substance: CHOLECALCIFEROL
     Dosage: UNK
  17. PLAQUENIL [Concomitant]
     Active Substance: HYDROXYCHLOROQUINE SULFATE
     Dosage: UNK
  18. OPANA ER [Concomitant]
     Active Substance: OXYMORPHONE HYDROCHLORIDE
     Dosage: UNK

REACTIONS (7)
  - Chest pain [Unknown]
  - Abdominal pain upper [Unknown]
  - Respiratory symptom [Unknown]
  - Depression [Unknown]
  - Nausea [Unknown]
  - Dyspnoea [Unknown]
  - Rheumatoid arthritis [Unknown]
